FAERS Safety Report 10201740 (Version 1)
Quarter: 2014Q2

REPORT INFORMATION
  Report Type: Spontaneous
  Country: US (occurrence: US)
  Receive Date: 20140528
  Receipt Date: 20140528
  Transmission Date: 20141212
  Serious: No
  Sender: FDA-Public Use
  Company Number: US-BRISTOL-MYERS SQUIBB COMPANY-19035526

PATIENT
  Age: 47 Year
  Sex: Male
  Weight: 134.24 kg

DRUGS (2)
  1. METFORMIN HCL [Suspect]
     Indication: DIABETES MELLITUS
  2. GLIPIZIDE [Suspect]
     Indication: DIABETES MELLITUS

REACTIONS (3)
  - Malaise [Unknown]
  - Feeling jittery [Unknown]
  - Flushing [Unknown]
